FAERS Safety Report 24086054 (Version 1)
Quarter: 2024Q3

REPORT INFORMATION
  Report Type: Spontaneous
  Country: FR (occurrence: FR)
  Receive Date: 20240712
  Receipt Date: 20240712
  Transmission Date: 20241017
  Serious: Yes (Life-Threatening)
  Sender: MYLAN
  Company Number: None

PATIENT
  Age: 68 Year
  Sex: Female
  Weight: 57.4 kg

DRUGS (11)
  1. CLOZAPINE [Suspect]
     Active Substance: CLOZAPINE
     Indication: Dementia with Lewy bodies
     Dosage: 25 MILLIGRAM, QD
     Route: 048
     Dates: start: 20240619, end: 20240620
  2. CARBIDOPA [Concomitant]
     Active Substance: CARBIDOPA
     Dosage: 400 MILLIGRAM, QD
     Route: 048
  3. ALLOPURINOL [Concomitant]
     Active Substance: ALLOPURINOL
     Dosage: 100 MILLIGRAM, QD
     Route: 048
  4. PERINDOPRIL [Concomitant]
     Active Substance: PERINDOPRIL
     Indication: Hypertension
     Dosage: 5 MILLIGRAM, QD
     Route: 048
     Dates: end: 20240620
  5. AMLODIPINE [Concomitant]
     Active Substance: AMLODIPINE BESYLATE
     Indication: Hypertension
     Dosage: 5 MILLIGRAM, QD
     Route: 048
     Dates: end: 20240620
  6. RIVASTIGMINE TARTRATE [Concomitant]
     Active Substance: RIVASTIGMINE TARTRATE
     Dosage: 4.6 MILLIGRAM, QD
     Route: 062
     Dates: start: 20240601
  7. DULOXETINE HYDROCHLORIDE [Concomitant]
     Active Substance: DULOXETINE HYDROCHLORIDE
     Dosage: 90 MILLIGRAM, QD
     Route: 048
  8. KARDEGIC [Concomitant]
     Active Substance: ASPIRIN DL-LYSINE
     Dosage: 1 DOSAGE FORM, QD, POWDER FOR ORAL SOLUTION IN SACHET-DOSE
     Route: 048
  9. LEVOTHYROXINE [Concomitant]
     Active Substance: LEVOTHYROXINE\LEVOTHYROXINE SODIUM
     Dosage: 1 DOSAGE FORM, QD, SCORED TABLET
     Route: 048
  10. LEVODOPA [Concomitant]
     Active Substance: LEVODOPA
     Dosage: 40 MILLIGRAM, QD
     Route: 048
  11. OXAZEPAM [Concomitant]
     Active Substance: OXAZEPAM
     Dosage: 1 DOSAGE FORM, QD
     Route: 048

REACTIONS (3)
  - Hypotension [Recovered/Resolved]
  - Sedation [Recovered/Resolved]
  - Incorrect dose administered [Recovered/Resolved]

NARRATIVE: CASE EVENT DATE: 20240619
